FAERS Safety Report 5118588-4 (Version None)
Quarter: 2006Q4

REPORT INFORMATION
  Report Type: 
  Country: None (occurrence: None)
  Receive Date: 20061002
  Receipt Date: 20060801
  Transmission Date: 20070319
  Serious: Yes (Death)
  Sender: FDA-Public Use
  Company Number: PHBS2006BR11732

PATIENT
  Age: 22 Year
  Sex: Male
  Weight: 38.8 kg

DRUGS (7)
  1. ZELMAC [Suspect]
     Indication: CONSTIPATION
     Dosage: 12 MG/DAY
     Route: 048
     Dates: start: 20050101, end: 20060601
  2. LUFTAL [Concomitant]
     Indication: FLATULENCE
     Dosage: UNK, Q6H
     Route: 048
     Dates: start: 20040101
  3. DIGEPLUS [Concomitant]
     Indication: FLATULENCE
     Dosage: UNK, BID
     Dates: start: 20050101
  4. CITALOPRAM HYDROBROMIDE [Concomitant]
     Indication: DEPRESSION
     Dosage: 20 MG, QD
     Route: 048
     Dates: start: 20060101
  5. OMEPRAZOLE [Concomitant]
     Indication: STOMACH DISCOMFORT
     Dosage: 80  MG/DAY
     Route: 048
     Dates: start: 20060101
  6. INSULIN [Concomitant]
  7. VITAMIN B-12 [Concomitant]
     Dosage: 1 DF, QMO

REACTIONS (8)
  - ANAEMIA [None]
  - CARDIO-RESPIRATORY ARREST [None]
  - COELIAC DISEASE [None]
  - DIABETES MELLITUS INSULIN-DEPENDENT [None]
  - DRUG INEFFECTIVE [None]
  - IMPAIRED GASTRIC EMPTYING [None]
  - MALNUTRITION [None]
  - SEPTIC SHOCK [None]
